FAERS Safety Report 18436913 (Version 1)
Quarter: 2020Q4

REPORT INFORMATION
  Report Type: Spontaneous
  Country: US (occurrence: US)
  Receive Date: 20201028
  Receipt Date: 20201028
  Transmission Date: 20210114
  Serious: Yes (Life-Threatening, Hospitalization)
  Sender: FDA-Public Use
  Company Number: US-MYLANLABS-2020M1090675

PATIENT
  Age: 34 Year
  Sex: Male

DRUGS (10)
  1. NOREPINEPHRINE. [Suspect]
     Active Substance: NOREPINEPHRINE
     Indication: DISTRIBUTIVE SHOCK
  2. EPINEPHRINE. [Suspect]
     Active Substance: EPINEPHRINE
     Indication: DISTRIBUTIVE SHOCK
  3. VASOPRESSIN. [Suspect]
     Active Substance: VASOPRESSIN
     Indication: VASOPLEGIA SYNDROME
     Dosage: PROLONGED HIGH DOSE
     Route: 065
  4. DOBUTAMINE [Suspect]
     Active Substance: DOBUTAMINE HYDROCHLORIDE
     Indication: VASOPLEGIA SYNDROME
     Dosage: PROLONGED HIGH DOSE
     Route: 065
  5. DOBUTAMINE [Suspect]
     Active Substance: DOBUTAMINE HYDROCHLORIDE
     Indication: DISTRIBUTIVE SHOCK
  6. METHYLENE BLUE. [Concomitant]
     Active Substance: METHYLENE BLUE
     Indication: DISTRIBUTIVE SHOCK
     Dosage: CONTINUOUS INFUSION
     Route: 050
  7. NOREPINEPHRINE. [Suspect]
     Active Substance: NOREPINEPHRINE
     Indication: VASOPLEGIA SYNDROME
     Dosage: PROLONGED HIGH DOSE
     Route: 065
  8. VASOPRESSIN. [Suspect]
     Active Substance: VASOPRESSIN
     Indication: DISTRIBUTIVE SHOCK
  9. METHYLENE BLUE. [Concomitant]
     Active Substance: METHYLENE BLUE
     Indication: VASOPLEGIA SYNDROME
     Dosage: LOADING LOSE
     Route: 065
  10. EPINEPHRINE. [Suspect]
     Active Substance: EPINEPHRINE
     Indication: VASOPLEGIA SYNDROME
     Dosage: PROLONGED HIGH DOSE
     Route: 065

REACTIONS (1)
  - Drug ineffective [Unknown]
